FAERS Safety Report 22108305 (Version 1)
Quarter: 2023Q1

REPORT INFORMATION
  Report Type: Spontaneous
  Country: US (occurrence: None)
  Receive Date: 20230316
  Receipt Date: 20230316
  Transmission Date: 20230418
  Serious: No
  Sender: FDA-Public Use
  Company Number: None

PATIENT
  Age: 43 Year
  Sex: Male
  Weight: 129.3 kg

DRUGS (1)
  1. ACTIVASE [Suspect]
     Active Substance: ALTEPLASE
     Indication: Cerebrovascular accident
     Route: 042
     Dates: start: 20230102, end: 20230102

REACTIONS (5)
  - Dyspnoea [None]
  - Chest discomfort [None]
  - Flushing [None]
  - Flank pain [None]
  - Drug hypersensitivity [None]

NARRATIVE: CASE EVENT DATE: 20230102
